FAERS Safety Report 16938701 (Version 2)
Quarter: 2019Q4

REPORT INFORMATION
  Report Type: Report from Study
  Country: CO (occurrence: CO)
  Receive Date: 20191019
  Receipt Date: 20191210
  Transmission Date: 20200122
  Serious: Yes (Life-Threatening)
  Sender: FDA-Public Use
  Company Number: PHHY2018CO200935

PATIENT
  Sex: Male
  Weight: 81 kg

DRUGS (2)
  1. SIGNIFOR [Suspect]
     Active Substance: PASIREOTIDE
     Indication: PITUITARY-DEPENDENT CUSHING^S SYNDROME
     Dosage: 1.2 MG, QD
     Route: 058
     Dates: start: 20181106, end: 201910
  2. SIGNIFOR [Suspect]
     Active Substance: PASIREOTIDE
     Dosage: 1.2 MG, QD
     Route: 058

REACTIONS (10)
  - Skin discolouration [Unknown]
  - Cortisol increased [Unknown]
  - Inappropriate schedule of product administration [Unknown]
  - Cortisol decreased [Unknown]
  - Cardiac disorder [Unknown]
  - Drug intolerance [Unknown]
  - Nausea [Unknown]
  - Malaise [Unknown]
  - Urine output increased [Unknown]
  - Dizziness [Unknown]
